FAERS Safety Report 18292843 (Version 2)
Quarter: 2020Q4

REPORT INFORMATION
  Report Type: Spontaneous
  Country: US (occurrence: US)
  Receive Date: 20200921
  Receipt Date: 20201014
  Transmission Date: 20210113
  Serious: No
  Sender: FDA-Public Use
  Company Number: US-ELI_LILLY_AND_COMPANY-US202008010843

PATIENT
  Age: 54 Year
  Sex: Male

DRUGS (1)
  1. EMGALITY [Suspect]
     Active Substance: GALCANEZUMAB-GNLM
     Indication: MIGRAINE
     Dosage: 120 MG, UNKNOWN
     Route: 058
     Dates: start: 2018

REACTIONS (4)
  - Drug ineffective [Unknown]
  - Migraine [Not Recovered/Not Resolved]
  - Headache [Unknown]
  - Product storage error [Unknown]

NARRATIVE: CASE EVENT DATE: 20200809
